FAERS Safety Report 8459469-8 (Version None)
Quarter: 2012Q2

REPORT INFORMATION
  Report Type: 
  Country: None (occurrence: None)
  Receive Date: 20120622
  Receipt Date: 20120613
  Transmission Date: 20120825
  Serious: Yes (Hospitalization)
  Sender: FDA-Public Use
  Company Number: US-JNJFOC-20120606707

PATIENT
  Sex: Male
  Weight: 81.65 kg

DRUGS (3)
  1. AN UNKNOWN MEDICATION [Concomitant]
     Route: 065
  2. DURAGESIC-100 [Suspect]
     Indication: PAIN
     Route: 062
  3. DURAGESIC-100 [Suspect]
     Route: 062

REACTIONS (7)
  - SCIATICA [None]
  - SPINAL COLUMN STENOSIS [None]
  - DRY MOUTH [None]
  - WRONG TECHNIQUE IN DRUG USAGE PROCESS [None]
  - PRODUCT QUALITY ISSUE [None]
  - PAIN [None]
  - PRODUCT PACKAGING ISSUE [None]
